FAERS Safety Report 17525024 (Version 1)
Quarter: 2020Q1

REPORT INFORMATION
  Report Type: Spontaneous
  Country: DE (occurrence: DE)
  Receive Date: 20200310
  Receipt Date: 20200310
  Transmission Date: 20200409
  Serious: Yes (Other)
  Sender: FDA-Public Use
  Company Number: DE-BAYER-2020-037674

PATIENT
  Age: 54 Year
  Sex: Female
  Weight: 71 kg

DRUGS (1)
  1. CIPROFLOXACIN. [Suspect]
     Active Substance: CIPROFLOXACIN
     Dosage: UNK
     Dates: start: 20000307

REACTIONS (36)
  - Memory impairment [None]
  - Tendon discomfort [None]
  - Joint noise [None]
  - Musculoskeletal stiffness [None]
  - Muscle discomfort [None]
  - Hypoacusis [None]
  - Plantar erythema [None]
  - Tinnitus [None]
  - Tongue disorder [None]
  - Arrhythmia [None]
  - Muscle tightness [None]
  - Dyspnoea [None]
  - Ear discomfort [None]
  - Muscular weakness [None]
  - Throat tightness [None]
  - Musculoskeletal pain [None]
  - Paraesthesia [None]
  - Gingival pain [None]
  - Disturbance in attention [None]
  - Dysstasia [None]
  - Limb discomfort [None]
  - Headache [None]
  - Sleep disorder [None]
  - Gait disturbance [None]
  - Arthralgia [None]
  - Sensory disturbance [None]
  - Paraesthesia oral [None]
  - Insomnia [None]
  - Genital hypoaesthesia [None]
  - Gingival pain [None]
  - Skin exfoliation [Recovered/Resolved]
  - Tongue discomfort [None]
  - Muscle twitching [None]
  - Hypoaesthesia [None]
  - Depressed mood [None]
  - Fear [None]

NARRATIVE: CASE EVENT DATE: 20181102
